FAERS Safety Report 9665845 (Version 1)
Quarter: 2013Q4

REPORT INFORMATION
  Report Type: Spontaneous
  Country: US (occurrence: None)
  Receive Date: 20131031
  Receipt Date: 20131031
  Transmission Date: 20140711
  Serious: Yes (Disabling, Other)
  Sender: FDA-Public Use
  Company Number: None

PATIENT
  Age: 85 Year
  Sex: Female
  Weight: 60.78 kg

DRUGS (7)
  1. AZITHROMYCIN (AZITHROMYCIN) [Suspect]
     Dosage: 250 MG; 6 PILLS; TWICE 1ST DAY; ONCE FOR 4 DAYS; BY MOUTH
     Route: 048
     Dates: start: 20130329, end: 20130402
  2. LISINOPRIL [Concomitant]
  3. CHLORD/CLIDI5 [Concomitant]
  4. PROBIOTIC [Concomitant]
  5. METRONIDAZOLE [Concomitant]
  6. VANCOMYCIN [Concomitant]
  7. CHOLESTYRAM [Concomitant]

REACTIONS (1)
  - Clostridium difficile colitis [None]
